FAERS Safety Report 8964602 (Version 2)
Quarter: 2014Q1

REPORT INFORMATION
  Report Type: Report from Study
  Country: CA (occurrence: CA)
  Receive Date: 20121214
  Receipt Date: 20140318
  Transmission Date: 20141002
  Serious: Yes (Other)
  Sender: FDA-Public Use
  Company Number: CA-JNJFOC-20121203320

PATIENT
  Age: 26 Year
  Sex: Female
  Weight: 60 kg

DRUGS (5)
  1. REMICADE [Suspect]
     Indication: CROHN^S DISEASE
     Route: 042
     Dates: start: 20120315
  2. REMICADE [Suspect]
     Indication: CROHN^S DISEASE
     Route: 042
     Dates: start: 201102
  3. IMURAN [Concomitant]
     Indication: CROHN^S DISEASE
     Dosage: FOR A DURATION OF 10 YEARS
     Route: 048
  4. VITAMIN B12 [Concomitant]
     Indication: ANAEMIA
     Route: 058
  5. DEPO CONTRACEPTIVE [Concomitant]
     Indication: CONTRACEPTION
     Route: 065

REACTIONS (2)
  - Rectal abscess [Recovered/Resolved]
  - Oral candidiasis [Recovered/Resolved]
